FAERS Safety Report 4785397-5 (Version None)
Quarter: 2005Q3

REPORT INFORMATION
  Report Type: 
  Country: None (occurrence: None)
  Receive Date: 20050929
  Receipt Date: 20050919
  Transmission Date: 20060218
  Serious: Yes (Hospitalization)
  Sender: FDA-Public Use
  Company Number: 2005132188

PATIENT
  Age: 81 Year
  Sex: Female

DRUGS (17)
  1. ASPIRIN [Suspect]
     Indication: ILL-DEFINED DISORDER
     Dosage: 75 MG (75 MG, 1 IN 1 D), ORAL
     Route: 048
  2. CELEBREX [Suspect]
     Indication: ILL-DEFINED DISORDER
     Dosage: 200 MG (200 MG, 1 IN 1 D), ORAL
     Route: 048
  3. WARFARIN SODIUM [Suspect]
     Indication: ATRIAL FIBRILLATION
     Dosage: (2.5 MG), ORAL
     Route: 048
  4. CALCICHEW-D3 (CALCIUM CARBONATE COLECALCIFEROL) [Concomitant]
  5. SYMBICORT (BUDESONIDE, FORMOTEROL FUMARATE) [Concomitant]
  6. GLUCOSAMINE (GLUCOSAMINE) [Concomitant]
  7. ALVEDON (PARACETAMOL) [Concomitant]
  8. MALVITONA (CAFFEINE, DEXPANTHENOL, NICOTINAMIDE, PYRIDOXINE HYDROCHLOR [Concomitant]
  9. DIGOXIN [Concomitant]
  10. FUROSEMIDE [Concomitant]
  11. SPIRONOLACTONE [Concomitant]
  12. VERPAMIL (VERAPAMIL HYDROCHLORIDE) [Concomitant]
  13. RAMIPRIL [Concomitant]
  14. METFORMIN HCL [Concomitant]
  15. TRIOBE (CYANOCOBALAMIN, FOLIC ACID, PYRIDOXINE) [Concomitant]
  16. NOVOMIX (INSULIN ASPART) [Concomitant]
  17. LANSOPRAZOLE [Concomitant]

REACTIONS (5)
  - BLOOD CREATININE INCREASED [None]
  - BLOOD POTASSIUM INCREASED [None]
  - DIZZINESS [None]
  - GASTRIC ULCER HAEMORRHAGE [None]
  - HAEMOGLOBIN DECREASED [None]
